FAERS Safety Report 17650204 (Version 1)
Quarter: 2020Q2

REPORT INFORMATION
  Report Type: Spontaneous
  Country: US (occurrence: US)
  Receive Date: 20200409
  Receipt Date: 20200409
  Transmission Date: 20200713
  Serious: Yes (Other)
  Sender: FDA-Public Use
  Company Number: US-BAYER-2020-057662

PATIENT
  Sex: Female

DRUGS (1)
  1. MIRENA [Suspect]
     Active Substance: LEVONORGESTREL
     Dosage: 20 ?G PER DAY, CONTINUOSLY
     Route: 015

REACTIONS (10)
  - Embedded device [None]
  - Vaginal haemorrhage [None]
  - Alopecia [None]
  - Weight increased [None]
  - Amnesia [None]
  - Abdominal pain upper [None]
  - Depression [None]
  - Procedural haemorrhage [None]
  - Headache [None]
  - Complication of device removal [None]
